FAERS Safety Report 9526769 (Version 2)
Quarter: 2013Q4

REPORT INFORMATION
  Report Type: Spontaneous
  Country: US (occurrence: US)
  Receive Date: 20130916
  Receipt Date: 20131113
  Transmission Date: 20140711
  Serious: Yes (Hospitalization, Disabling)
  Sender: FDA-Public Use
  Company Number: US-GLAXOSMITHKLINE-A1041186A

PATIENT
  Age: 36 Year
  Sex: Female
  Weight: 118.6 kg

DRUGS (14)
  1. ADVAIR [Suspect]
     Indication: ASTHMA
     Dosage: 1PUFF TWICE PER DAY
     Route: 055
     Dates: start: 2001
  2. FLOVENT [Suspect]
     Indication: ASTHMA
     Dosage: 2PUFF TWICE PER DAY
     Route: 055
     Dates: start: 1998, end: 2001
  3. VANCERIL [Suspect]
     Indication: ASTHMA
     Dosage: 2PUFF TWICE PER DAY
     Dates: start: 1986, end: 1989
  4. BRETHINE [Concomitant]
  5. THEOPHYLLIN [Concomitant]
  6. ALBUTEROL [Concomitant]
  7. SEREVENT [Concomitant]
  8. MAXAIR [Concomitant]
  9. SINGULAIR [Concomitant]
  10. COMBIVENT [Concomitant]
  11. PREDNISONE [Concomitant]
  12. CALCIUM [Concomitant]
  13. NORCO [Concomitant]
  14. SOMA [Concomitant]

REACTIONS (20)
  - Glaucoma [Not Recovered/Not Resolved]
  - Intraocular pressure increased [Not Recovered/Not Resolved]
  - Corneal thinning [Not Recovered/Not Resolved]
  - Disability [Not Recovered/Not Resolved]
  - Bone disorder [Not Recovered/Not Resolved]
  - Spinal disorder [Not Recovered/Not Resolved]
  - Intervertebral disc space narrowing [Not Recovered/Not Resolved]
  - Immobile [Not Recovered/Not Resolved]
  - Abasia [Not Recovered/Not Resolved]
  - Kyphosis [Not Recovered/Not Resolved]
  - Adverse event [Not Recovered/Not Resolved]
  - Respiratory disorder [Not Recovered/Not Resolved]
  - Inspiratory capacity decreased [Not Recovered/Not Resolved]
  - Investigation [Not Recovered/Not Resolved]
  - Mechanical ventilation [Unknown]
  - Lipoma [Not Recovered/Not Resolved]
  - Oral candidiasis [Unknown]
  - Insulin resistance [Not Recovered/Not Resolved]
  - Musculoskeletal pain [Not Recovered/Not Resolved]
  - Cervical spinal stenosis [Not Recovered/Not Resolved]
